FAERS Safety Report 5817059-7 (Version None)
Quarter: 2008Q3

REPORT INFORMATION
  Report Type: 
  Country: None (occurrence: None)
  Receive Date: 20080722
  Receipt Date: 20080714
  Transmission Date: 20090109
  Serious: Yes (Other)
  Sender: FDA-Public Use
  Company Number: US-AMGEN-STX294765

PATIENT
  Sex: Female

DRUGS (3)
  1. ENBREL [Suspect]
     Indication: RHEUMATOID ARTHRITIS
     Route: 058
     Dates: start: 20040604
  2. METHOTREXATE [Concomitant]
     Route: 065
  3. LYRICA [Concomitant]
     Route: 065

REACTIONS (2)
  - DIPLOPIA [None]
  - RHEUMATOID ARTHRITIS [None]
